FAERS Safety Report 16624656 (Version 2)
Quarter: 2019Q3

REPORT INFORMATION
  Report Type: Spontaneous
  Country: US (occurrence: US)
  Receive Date: 20190724
  Receipt Date: 20190826
  Transmission Date: 20191004
  Serious: Yes (Other)
  Sender: FDA-Public Use
  Company Number: US-PFIZER INC-2019267747

PATIENT
  Age: 77 Year
  Sex: Female
  Weight: 78 kg

DRUGS (2)
  1. IBRANCE [Suspect]
     Active Substance: PALBOCICLIB
     Indication: BREAST CANCER FEMALE
     Dosage: 125 MG, CYCLIC (EVERY OTHER NIGHT FOR 2 WEEKS, THEN OFF 7 DAYS OR A WEEK THEN EVERY OTHER NIGHT)
     Route: 048
     Dates: start: 2013
  2. IBRANCE [Suspect]
     Active Substance: PALBOCICLIB
     Dosage: 11 DF, ALTERNATE DAY (TAKE 11 PILLS EVERY OTHER DAY)

REACTIONS (4)
  - Alopecia [Unknown]
  - Product use issue [Unknown]
  - Cataract [Unknown]
  - Off label use [Unknown]
